FAERS Safety Report 10701170 (Version 1)
Quarter: 2015Q1

REPORT INFORMATION
  Report Type: Spontaneous
  Country: FI (occurrence: FI)
  Receive Date: 20150109
  Receipt Date: 20150109
  Transmission Date: 20150721
  Serious: Yes (Other)
  Sender: FDA-Public Use
  Company Number: FI-AMGEN-FINSP2015000062

PATIENT
  Sex: Female
  Weight: 47 kg

DRUGS (5)
  1. OMEGA 3                            /01333901/ [Concomitant]
  2. VITAMIN D                          /00107901/ [Concomitant]
     Active Substance: ERGOCALCIFEROL
  3. CALCIUM [Concomitant]
     Active Substance: CALCIUM
  4. MAGNESIUM [Concomitant]
     Active Substance: MAGNESIUM
  5. PROLIA [Suspect]
     Active Substance: DENOSUMAB
     Indication: OSTEOPOROSIS
     Dosage: 60 MG, Q6MO
     Route: 065
     Dates: start: 2011

REACTIONS (8)
  - Bone density decreased [Unknown]
  - Malaise [Unknown]
  - Sensory loss [Unknown]
  - Bone pain [Unknown]
  - Respiratory tract infection [Unknown]
  - Osteoporosis [Unknown]
  - Chills [Unknown]
  - Fracture [Unknown]
